FAERS Safety Report 15323762 (Version 2)
Quarter: 2018Q3

REPORT INFORMATION
  Report Type: Report from Study
  Country: None (occurrence: CO)
  Receive Date: 20180828
  Receipt Date: 20180907
  Transmission Date: 20181010
  Serious: Yes (Hospitalization, Other)
  Sender: FDA-Public Use
  Company Number: CO-ABBVIE-18K-036-2466144-00

PATIENT
  Sex: Male

DRUGS (1)
  1. HUMIRA [Suspect]
     Active Substance: ADALIMUMAB
     Indication: ANKYLOSING SPONDYLITIS
     Route: 058
     Dates: start: 20090311, end: 20180719

REACTIONS (4)
  - Bronchiolitis [Unknown]
  - Bronchitis [Recovering/Resolving]
  - Surgery [Recovered/Resolved]
  - Angina unstable [Recovering/Resolving]

NARRATIVE: CASE EVENT DATE: 2018
